FAERS Safety Report 9224157 (Version 1)
Quarter: 2013Q1

REPORT INFORMATION
  Report Type: Spontaneous
  Country: US (occurrence: None)
  Receive Date: 20120830
  Receipt Date: 20120830
  Transmission Date: 20140127
  Serious: Yes (Other)
  Sender: FDA-Public Use
  Company Number: PHEH2011US010439

PATIENT
  Age: 54 Year
  Sex: Male
  Weight: 94.8 kg

DRUGS (1)
  1. EXFORGE (VALSARTAN, AMLODIPINE) UNKNOWN [Suspect]
     Indication: HYPERTENSION
     Dosage: 1 DF ( 320/10 MG)
     Route: 048
     Dates: start: 20111108, end: 20111129

REACTIONS (3)
  - Rash maculo-papular [None]
  - Hypersensitivity [None]
  - Rash erythematous [None]
